FAERS Safety Report 22174591 (Version 3)
Quarter: 2023Q4

REPORT INFORMATION
  Report Type: Spontaneous
  Country: US (occurrence: US)
  Receive Date: 20230405
  Receipt Date: 20231025
  Transmission Date: 20240109
  Serious: No
  Sender: FDA-Public Use
  Company Number: US-SA-SAC20230331001077

PATIENT
  Age: 90 Year
  Sex: Female

DRUGS (10)
  1. DUPIXENT [Suspect]
     Active Substance: DUPILUMAB
     Indication: Chloasma
     Dosage: 300 MG, QOW
     Route: 058
  2. ALLOPURINOL [Concomitant]
     Active Substance: ALLOPURINOL
     Dosage: UNK
  3. AMLODIPINE BESYLATE [Concomitant]
     Active Substance: AMLODIPINE BESYLATE
     Dosage: UNK
  4. LOSARTAN POTASSIUM [Concomitant]
     Active Substance: LOSARTAN POTASSIUM
     Dosage: UNK
  5. CYANOCOBALAMIN [Concomitant]
     Active Substance: CYANOCOBALAMIN
     Dosage: UNK
  6. VITAMIN D3 [Concomitant]
     Active Substance: CHOLECALCIFEROL
     Dosage: UNK
  7. TYLENOL [Concomitant]
     Active Substance: ACETAMINOPHEN
  8. TYLENOL [Concomitant]
     Active Substance: ACETAMINOPHEN
  9. HYDROQUINONE [Concomitant]
     Active Substance: HYDROQUINONE
  10. TRETINOIN [Concomitant]
     Active Substance: TRETINOIN

REACTIONS (9)
  - Skin discolouration [Not Recovered/Not Resolved]
  - Dry skin [Not Recovered/Not Resolved]
  - Chloasma [Not Recovered/Not Resolved]
  - Condition aggravated [Not Recovered/Not Resolved]
  - Feeling abnormal [Not Recovered/Not Resolved]
  - Dry mouth [Not Recovered/Not Resolved]
  - Dehydration [Not Recovered/Not Resolved]
  - Pruritus [Not Recovered/Not Resolved]
  - Product use in unapproved indication [Unknown]

NARRATIVE: CASE EVENT DATE: 20230101
